FAERS Safety Report 6798037-0 (Version None)
Quarter: 2010Q2

REPORT INFORMATION
  Report Type: 
  Country: None (occurrence: None)
  Receive Date: 20100624
  Receipt Date: 20100609
  Transmission Date: 20101027
  Serious: Yes (Other)
  Sender: FDA-Public Use
  Company Number: 20108917

PATIENT
  Sex: Male

DRUGS (1)
  1. LIORESAL [Suspect]
     Indication: MUSCLE SPASTICITY
     Dosage: 245-75 MCG, DAILY, INTRATHECAL
     Route: 037

REACTIONS (2)
  - DRUG INEFFECTIVE [None]
  - MEDICAL DEVICE COMPLICATION [None]
